FAERS Safety Report 25501759 (Version 3)
Quarter: 2025Q4

REPORT INFORMATION
  Report Type: Report from Study
  Country: EU (occurrence: EU)
  Receive Date: 20250702
  Receipt Date: 20251202
  Transmission Date: 20260117
  Serious: Yes (Hospitalization, Other)
  Sender: ABBVIE
  Company Number: EU-ABBVIE-6347568

PATIENT
  Age: 58 Year
  Sex: Male
  Weight: 105 kg

DRUGS (7)
  1. SKYRIZI [Suspect]
     Active Substance: RISANKIZUMAB-RZAA
     Indication: Psoriatic arthropathy
     Dosage: 150MG/ 12 WKS. ON 1 D/WK
     Route: 058
     Dates: start: 20210615
  2. HYDROCORTISONE [Concomitant]
     Active Substance: HYDROCORTISONE
     Indication: Product used for unknown indication
     Dosage: 2-1-0
     Route: 048
     Dates: start: 20211010
  3. LEVOTHYROXINE SODIUM [Concomitant]
     Active Substance: LEVOTHYROXINE SODIUM
     Indication: Product used for unknown indication
     Dosage: 0-1-0
  4. OPIPRAMOL HYDROCHLORIDE [Concomitant]
     Active Substance: OPIPRAMOL HYDROCHLORIDE
     Indication: Panic attack
     Dosage: TIME INTERVAL: AS NECESSARY
  5. PANTOPRAZOLE [Concomitant]
     Active Substance: PANTOPRAZOLE
     Indication: Product used for unknown indication
     Dosage: (PANTOPRAZOLE ARISTO 40 MG
     Route: 048
     Dates: start: 20210518
  6. OPIPRAMOL HYDROCHLORIDE [Concomitant]
     Active Substance: OPIPRAMOL HYDROCHLORIDE
     Indication: Product used for unknown indication
  7. ACETAMINOPHEN [Concomitant]
     Active Substance: ACETAMINOPHEN
     Indication: Product used for unknown indication
     Dosage: 2-2-2-2 TABLETS?500 MG

REACTIONS (21)
  - Pituitary tumour benign [Recovered/Resolved]
  - Visual field defect [Recovered/Resolved]
  - Headache [Unknown]
  - Immobile [Unknown]
  - Blood luteinising hormone decreased [Unknown]
  - Blood follicle stimulating hormone decreased [Unknown]
  - Oestradiol decreased [Unknown]
  - Blood testosterone decreased [Unknown]
  - Cortisol decreased [Recovered/Resolved]
  - Staphylococcal infection [Unknown]
  - Vitamin C deficiency [Unknown]
  - Extravasation blood [Unknown]
  - Haemosiderin stain [Unknown]
  - C-reactive protein increased [Recovering/Resolving]
  - Thyroid disorder [Unknown]
  - Antiendomysial antibody positive [Unknown]
  - Blood creatine phosphokinase increased [Unknown]
  - Headache [Recovered/Resolved]
  - Restless legs syndrome [Recovered/Resolved]
  - Squamous cell carcinoma [Recovered/Resolved]
  - Panic attack [Recovered/Resolved]

NARRATIVE: CASE EVENT DATE: 20211201
